FAERS Safety Report 7682085-2 (Version None)
Quarter: 2011Q3

REPORT INFORMATION
  Report Type: 
  Country: None (occurrence: None)
  Receive Date: 20110810
  Receipt Date: 20110727
  Transmission Date: 20111222
  Serious: Yes (Hospitalization)
  Sender: FDA-Public Use
  Company Number: 1000022633

PATIENT
  Age: 83 Year
  Sex: Female

DRUGS (9)
  1. TERCIAN 9CYAMEMAZINE) (SOLUTION) (CYAMEMAZINE) [Concomitant]
  2. COVERSYL (PERINDOPRIL ERBUMINE) (PERINDOPRIL ERBUMINE) [Concomitant]
  3. CITALOPRAM HYDROBROMIDE [Suspect]
     Dosage: 20 MG (20 MG, 1 IN 1 D, ORAL
     Route: 048
     Dates: start: 20080101, end: 20110410
  4. EQUANIL (MEPROBAMATE) (MEPROBAMATE) [Concomitant]
  5. OGAST (LANSOPRAZOLE) (LANSOPRAZOLE) [Concomitant]
  6. LAMALINE (LAMALINE) (LAMALINE) [Concomitant]
  7. FORLAX (MACROGOL) (MACROGOL) [Concomitant]
  8. EXELON (RIVASTIGMINE) (RIVASTIGMINE) [Concomitant]
  9. ASPIRIN [Suspect]
     Dosage: 75 MG (75 MG, 1 IN 1 D), ORAL
     Route: 048
     Dates: start: 20080101, end: 20110410

REACTIONS (8)
  - COLONIC POLYP [None]
  - ANAEMIA MACROCYTIC [None]
  - MALAISE [None]
  - PALLOR [None]
  - MENTAL DISORDER [None]
  - LOSS OF CONSCIOUSNESS [None]
  - HIATUS HERNIA [None]
  - NORMOCHROMIC NORMOCYTIC ANAEMIA [None]
